FAERS Safety Report 5418959-2 (Version None)
Quarter: 2007Q3

REPORT INFORMATION
  Report Type: 
  Country: None (occurrence: None)
  Receive Date: 20070817
  Receipt Date: 20070806
  Transmission Date: 20080115
  Serious: Yes (Other)
  Sender: FDA-Public Use
  Company Number: GB-PFIZER INC-2007065654

PATIENT
  Age: 59 Year
  Sex: Female

DRUGS (3)
  1. METHYLPREDNISOLONE 16MG TAB [Suspect]
     Indication: NON-HODGKIN'S LYMPHOMA
     Dates: start: 20010601, end: 20050301
  2. CISPLATIN [Suspect]
     Indication: NON-HODGKIN'S LYMPHOMA
     Dates: start: 20010601, end: 20050301
  3. GEMCITABINE HCL [Suspect]
     Indication: NON-HODGKIN'S LYMPHOMA
     Dates: start: 20010601, end: 20050301

REACTIONS (2)
  - ANAEMIA [None]
  - NEUTROPENIC SEPSIS [None]
